FAERS Safety Report 8482724-2 (Version None)
Quarter: 2012Q3

REPORT INFORMATION
  Report Type: 
  Country: None (occurrence: None)
  Receive Date: 20120702
  Receipt Date: 20120625
  Transmission Date: 20120928
  Serious: Yes (Other)
  Sender: FDA-Public Use
  Company Number: US-JNJFOC-20120612399

PATIENT
  Sex: Female
  Weight: 51.26 kg

DRUGS (3)
  1. ALL OTHER THERAPEUTIC PRODUCT [Concomitant]
     Route: 065
  2. ELMIRON [Suspect]
     Indication: CYSTITIS INTERSTITIAL
     Dosage: MORNING
     Route: 048
     Dates: start: 20100101
  3. ELMIRON [Suspect]
     Dosage: EVENING
     Route: 048
     Dates: start: 20100101

REACTIONS (1)
  - BREAST CANCER [None]
